FAERS Safety Report 21412576 (Version 1)
Quarter: 2022Q4

REPORT INFORMATION
  Report Type: Spontaneous
  Country: US (occurrence: None)
  Receive Date: 20221004
  Receipt Date: 20221004
  Transmission Date: 20230112
  Serious: Yes (Death)
  Sender: FDA-Public Use
  Company Number: None

PATIENT
  Age: 57 Year
  Sex: 0

DRUGS (1)
  1. PREVYMIS [Suspect]
     Active Substance: LETERMOVIR
     Dosage: FREQUENCY : DAILY;?
     Route: 048

REACTIONS (1)
  - Renal failure [None]

NARRATIVE: CASE EVENT DATE: 20220909
